FAERS Safety Report 9720436 (Version 1)
Quarter: 2013Q4

REPORT INFORMATION
  Report Type: Spontaneous
  Country: BE (occurrence: BE)
  Receive Date: 20131129
  Receipt Date: 20131129
  Transmission Date: 20140711
  Serious: Yes (Other)
  Sender: FDA-Public Use
  Company Number: 2012SP001861

PATIENT
  Age: 62 Year
  Sex: Female

DRUGS (4)
  1. EPIRUBICIN [Suspect]
     Indication: BREAST NEOPLASM
     Route: 042
     Dates: start: 20120309, end: 20120309
  2. FLUOROURACIL [Suspect]
     Indication: BREAST NEOPLASM
     Route: 042
     Dates: start: 20120309, end: 20120309
  3. CYCLOPHOSPHAMIDE [Suspect]
     Indication: BREAST NEOPLASM
     Route: 042
     Dates: start: 20120309, end: 20120309
  4. HERCEPTIN [Concomitant]

REACTIONS (1)
  - Neutropenia [Recovered/Resolved]
